FAERS Safety Report 10984221 (Version 4)
Quarter: 2015Q3

REPORT INFORMATION
  Report Type: Report from Study
  Country: US (occurrence: US)
  Receive Date: 20150403
  Receipt Date: 20150817
  Transmission Date: 20151125
  Serious: Yes (Other)
  Sender: FDA-Public Use
  Company Number: US-SA-2014SA130338

PATIENT
  Age: 47 Year
  Sex: Female

DRUGS (12)
  1. FISH OIL [Concomitant]
     Active Substance: FISH OIL
  2. AMBIEN [Concomitant]
     Active Substance: ZOLPIDEM TARTRATE
  3. ZOLPIDEM [Concomitant]
     Active Substance: ZOLPIDEM\ZOLPIDEM TARTRATE
  4. DIAZEPAM. [Concomitant]
     Active Substance: DIAZEPAM
  5. VITAMIN D3 [Concomitant]
     Active Substance: CHOLECALCIFEROL
  6. SERTRALINE HYDROCHLORIDE. [Concomitant]
     Active Substance: SERTRALINE HYDROCHLORIDE
  7. AUBAGIO [Suspect]
     Active Substance: TERIFLUNOMIDE
     Indication: MULTIPLE SCLEROSIS
     Route: 048
     Dates: start: 20140905
  8. HYDROCHLOROTHIAZIDE/LOSARTAN [Concomitant]
  9. SIMVASTATIN. [Concomitant]
     Active Substance: SIMVASTATIN
  10. MINIVELLE [Concomitant]
     Active Substance: ESTRADIOL
  11. BIOTIN [Concomitant]
     Active Substance: BIOTIN
  12. TURMERIC [Concomitant]
     Active Substance: TURMERIC

REACTIONS (21)
  - Multiple sclerosis relapse [Unknown]
  - Nuclear magnetic resonance imaging abnormal [Unknown]
  - Hypokinesia [Unknown]
  - Blood pressure increased [Unknown]
  - Confusional state [Unknown]
  - Vision blurred [Unknown]
  - Alopecia [Unknown]
  - Unevaluable event [Unknown]
  - Hypoaesthesia [Unknown]
  - Gait disturbance [Unknown]
  - Frustration [Unknown]
  - Blood potassium decreased [Unknown]
  - Headache [Unknown]
  - Hepatic enzyme increased [Recovering/Resolving]
  - Tremor [Not Recovered/Not Resolved]
  - Lymphocyte count decreased [Unknown]
  - Constipation [Unknown]
  - Lymphocyte count increased [Recovering/Resolving]
  - Memory impairment [Unknown]
  - Nausea [Unknown]
  - Laboratory test abnormal [Unknown]

NARRATIVE: CASE EVENT DATE: 201409
